FAERS Safety Report 15400583 (Version 2)
Quarter: 2018Q3

REPORT INFORMATION
  Report Type: Report from Study
  Country: EE (occurrence: EE)
  Receive Date: 20180919
  Receipt Date: 20180925
  Transmission Date: 20181010
  Serious: Yes (Hospitalization)
  Sender: FDA-Public Use
  Company Number: EE-009507513-1809EST006628

PATIENT
  Age: 81 Year
  Sex: Male

DRUGS (3)
  1. KEYTRUDA [Suspect]
     Active Substance: PEMBROLIZUMAB
     Dosage: 200 MG, ONE TIME DAILY DOSAGE (STRENGTH: 25 MG/ML)
     Dates: start: 20180730, end: 20180730
  2. KEYTRUDA [Suspect]
     Active Substance: PEMBROLIZUMAB
     Dosage: 200 MG, ONE TIME DAILY DOSAGE (STRENGTH: 25 MG/ML)
     Dates: start: 20180612, end: 20180612
  3. KEYTRUDA [Suspect]
     Active Substance: PEMBROLIZUMAB
     Dosage: 200 MG, ONE TIME DAILY DOSAGE (STRENGTH: 25 MG/ML)
     Dates: start: 20180703, end: 20180703

REACTIONS (2)
  - Pneumonitis [Recovering/Resolving]
  - Hyperventilation [Recovering/Resolving]

NARRATIVE: CASE EVENT DATE: 20180816
